FAERS Safety Report 19620380 (Version 1)
Quarter: 2021Q3

REPORT INFORMATION
  Report Type: Other
  Country: US (occurrence: US)
  Receive Date: 20210728
  Receipt Date: 20210728
  Transmission Date: 20211014
  Serious: Yes (Other)
  Sender: FDA-Public Use
  Company Number: US-ROCHE-2871120

PATIENT
  Sex: Female

DRUGS (1)
  1. XOLAIR [Suspect]
     Active Substance: OMALIZUMAB
     Indication: IDIOPATHIC URTICARIA
     Route: 065

REACTIONS (6)
  - Illness [Unknown]
  - Swelling [Unknown]
  - Drug ineffective [Unknown]
  - Weight increased [Unknown]
  - Autoimmune disorder [Unknown]
  - Urticaria [Unknown]
